FAERS Safety Report 4843700-1 (Version None)
Quarter: 2005Q4

REPORT INFORMATION
  Report Type: 
  Country: None (occurrence: None)
  Receive Date: 20051202
  Receipt Date: 20051128
  Transmission Date: 20060501
  Serious: Yes (Other)
  Sender: FDA-Public Use
  Company Number: PHEH2005US12929

PATIENT
  Age: 74 Year
  Sex: Female

DRUGS (4)
  1. MIACALCIN [Suspect]
     Indication: OSTEOPOROSIS
     Dosage: 200 IU, QD
     Dates: start: 20050601
  2. ACTONEL [Concomitant]
  3. VITAMINS NOS [Concomitant]
  4. PRED FORTE [Suspect]

REACTIONS (8)
  - ALOPECIA [None]
  - AMNESIA [None]
  - CATARACT [None]
  - CATARACT OPERATION [None]
  - DEPRESSION [None]
  - HAIR COLOUR CHANGES [None]
  - HAIR TEXTURE ABNORMAL [None]
  - VISION BLURRED [None]
